FAERS Safety Report 14274980 (Version 1)
Quarter: 2017Q4

REPORT INFORMATION
  Report Type: Spontaneous
  Country: US (occurrence: US)
  Receive Date: 20171212
  Receipt Date: 20171212
  Transmission Date: 20180321
  Serious: Yes (Death, Hospitalization)
  Sender: FDA-Public Use
  Company Number: US-JNJFOC-20171202706

PATIENT
  Age: 21 Year
  Sex: Female

DRUGS (2)
  1. ACETAMINOPHEN. [Suspect]
     Active Substance: ACETAMINOPHEN
     Route: 048
  2. ACETAMINOPHEN. [Suspect]
     Active Substance: ACETAMINOPHEN
     Indication: SUICIDE ATTEMPT
     Route: 048

REACTIONS (19)
  - Bradycardia [Fatal]
  - Toxicity to various agents [Fatal]
  - Exposure during pregnancy [Fatal]
  - Sinus tachycardia [Fatal]
  - Hypotension [Fatal]
  - Blood lactic acid increased [Fatal]
  - Pupil fixed [Fatal]
  - Pulseless electrical activity [Fatal]
  - Coagulation time prolonged [Fatal]
  - Ammonia increased [Fatal]
  - Transaminases increased [Fatal]
  - White blood cell count increased [Fatal]
  - Coma [Fatal]
  - Nausea [Fatal]
  - Blood glucose increased [Fatal]
  - Platelet count decreased [Fatal]
  - Haemoglobin decreased [Fatal]
  - Hypoxia [Fatal]
  - Abdominal pain [Fatal]
